FAERS Safety Report 23727029 (Version 1)
Quarter: 2024Q2

REPORT INFORMATION
  Report Type: Spontaneous
  Country: US (occurrence: US)
  Receive Date: 20240410
  Receipt Date: 20240410
  Transmission Date: 20240715
  Serious: No
  Sender: FDA-Public Use
  Company Number: US-SA-SAC20240405000912

PATIENT
  Age: 20 Year
  Sex: Male
  Weight: 81.6 kg

DRUGS (4)
  1. ALPROLIX [Suspect]
     Active Substance: EFTRENONACOG ALFA
     Indication: Factor IX deficiency
     Dosage: INFUSE 3000 UNITS (2700-3300) SLOW IV PUSH EVERY 48 HOURS ON DEMAND FOR MINOR TO MODERATE BLEEDS
     Route: 042
     Dates: start: 202301
  2. ALPROLIX [Suspect]
     Active Substance: EFTRENONACOG ALFA
     Indication: Factor IX deficiency
     Dosage: INFUSE 3000 UNITS (2700-3300) SLOW IV PUSH EVERY 48 HOURS ON DEMAND FOR MINOR TO MODERATE BLEEDS
     Route: 042
     Dates: start: 202301
  3. ALPROLIX [Suspect]
     Active Substance: EFTRENONACOG ALFA
     Dosage: 6000 UNITS (5400-6600) SLOW IV PUSH ON DEMAND FOR SEVERE BLEEDS
     Route: 042
     Dates: start: 202301
  4. ALPROLIX [Suspect]
     Active Substance: EFTRENONACOG ALFA
     Dosage: 6000 UNITS (5400-6600) SLOW IV PUSH ON DEMAND FOR SEVERE BLEEDS
     Route: 042
     Dates: start: 202301

REACTIONS (4)
  - Weight decreased [Unknown]
  - Haemorrhage [Recovered/Resolved]
  - Contusion [Recovered/Resolved]
  - Muscle strain [Recovered/Resolved]

NARRATIVE: CASE EVENT DATE: 20240101
